FAERS Safety Report 17106354 (Version 6)
Quarter: 2021Q1

REPORT INFORMATION
  Report Type: Report from Study
  Country: None (occurrence: CA)
  Receive Date: 20191203
  Receipt Date: 20210324
  Transmission Date: 20210419
  Serious: Yes (Hospitalization, Other)
  Sender: FDA-Public Use
  Company Number: CA-ABBVIE-19K-028-3177626-00

PATIENT
  Sex: Female

DRUGS (2)
  1. HUMIRA [Suspect]
     Active Substance: ADALIMUMAB
     Route: 058
  2. HUMIRA [Suspect]
     Active Substance: ADALIMUMAB
     Indication: CROHN^S DISEASE
     Route: 058
     Dates: start: 20100729, end: 201910

REACTIONS (11)
  - Haemorrhoids [Not Recovered/Not Resolved]
  - Crohn^s disease [Unknown]
  - Mental disorder [Not Recovered/Not Resolved]
  - Depression [Unknown]
  - Neoplasm malignant [Not Recovered/Not Resolved]
  - Feeling abnormal [Unknown]
  - Smear cervix abnormal [Unknown]
  - Intentional self-injury [Not Recovered/Not Resolved]
  - Hypophagia [Not Recovered/Not Resolved]
  - Abdominal distension [Not Recovered/Not Resolved]
  - Decreased appetite [Unknown]

NARRATIVE: CASE EVENT DATE: 2019
